FAERS Safety Report 14419212 (Version 1)
Quarter: 2018Q1

REPORT INFORMATION
  Report Type: Spontaneous
  Country: FR (occurrence: FR)
  Receive Date: 20180122
  Receipt Date: 20180122
  Transmission Date: 20180509
  Serious: Yes (Hospitalization)
  Sender: FDA-Public Use
  Company Number: FR-PFIZER INC-2018025848

PATIENT
  Age: 15 Year
  Sex: Male
  Weight: 56 kg

DRUGS (3)
  1. IBUPROFEN. [Suspect]
     Active Substance: IBUPROFEN
     Indication: INFLUENZA LIKE ILLNESS
     Dosage: 1 DF, 1X/DAY
     Route: 048
     Dates: start: 20170122, end: 20170125
  2. STREPSILS LIDOCAINE, PASTILLE [Suspect]
     Active Substance: AMYLMETACRESOL\DICHLOROBENZYL ALCOHOL\LIDOCAINE
     Indication: INFLUENZA LIKE ILLNESS
     Dosage: 1 DF, 1X/DAY
     Route: 048
     Dates: start: 20170122, end: 20170125
  3. PARACETAMOL [Concomitant]
     Active Substance: ACETAMINOPHEN
     Indication: PAIN
     Route: 048

REACTIONS (7)
  - Keratitis [Recovered/Resolved]
  - Erythema multiforme [Recovered/Resolved]
  - Mucosal inflammation [Recovered/Resolved]
  - Stomatitis [Recovered/Resolved]
  - Macule [Recovered/Resolved]
  - Weight decreased [Recovered/Resolved]
  - Dysuria [Recovered/Resolved]

NARRATIVE: CASE EVENT DATE: 20170206
